FAERS Safety Report 7891226-3 (Version None)
Quarter: 2011Q4

REPORT INFORMATION
  Report Type: 
  Country: None (occurrence: None)
  Receive Date: 20111103
  Receipt Date: 20110801
  Transmission Date: 20120403
  Serious: No
  Sender: FDA-Public Use
  Company Number: US-AMGEN-USASP2011038853

PATIENT
  Age: 10 Year
  Sex: Male

DRUGS (2)
  1. ENBREL [Suspect]
     Indication: JUVENILE ARTHRITIS
     Dates: start: 20100209, end: 20100101
  2. METHOTREXATE [Concomitant]
     Dates: start: 20110701

REACTIONS (2)
  - DRUG INEFFECTIVE [None]
  - JUVENILE ARTHRITIS [None]
